FAERS Safety Report 12708607 (Version 1)
Quarter: 2016Q3

REPORT INFORMATION
  Report Type: Spontaneous
  Country: US (occurrence: US)
  Receive Date: 20160901
  Receipt Date: 20160901
  Transmission Date: 20161109
  Serious: Yes (Other)
  Sender: FDA-Public Use
  Company Number: US-PFIZER INC-2016408931

PATIENT
  Age: 83 Year
  Sex: Female
  Weight: 76 kg

DRUGS (2)
  1. AMLODIPINE BESILATE [Suspect]
     Active Substance: AMLODIPINE BESYLATE
     Indication: HYPERTENSION
     Dosage: 5 MG, 2X/DAY
     Route: 048
  2. CRESTOR [Concomitant]
     Active Substance: ROSUVASTATIN CALCIUM
     Indication: BLOOD CHOLESTEROL INCREASED
     Dosage: UNK UNK, 1X/DAY, PROBABLY ONCE A DAY

REACTIONS (3)
  - Sinus arrest [Recovered/Resolved]
  - Product use issue [Unknown]
  - Bradycardia [Unknown]

NARRATIVE: CASE EVENT DATE: 201608
